FAERS Safety Report 7607793-0 (Version None)
Quarter: 2011Q3

REPORT INFORMATION
  Report Type: 
  Country: None (occurrence: None)
  Receive Date: 20110714
  Receipt Date: 20110706
  Transmission Date: 20111222
  Serious: Yes (Hospitalization)
  Sender: FDA-Public Use
  Company Number: JP-BRISTOL-MYERS SQUIBB COMPANY-15574791

PATIENT
  Age: 60 Year
  Sex: Female
  Weight: 45 kg

DRUGS (10)
  1. VOLTAREN [Concomitant]
     Indication: RHEUMATOID ARTHRITIS
  2. ALENDRONATE SODIUM [Concomitant]
  3. SELBEX [Concomitant]
     Indication: GASTRITIS PROPHYLAXIS
  4. TACROLIMUS [Concomitant]
  5. FOLIC ACID [Concomitant]
  6. SENNOSIDE [Concomitant]
  7. PREDNISOLONE [Concomitant]
     Indication: RHEUMATOID ARTHRITIS
     Route: 048
  8. ORENCIA [Suspect]
     Indication: RHEUMATOID ARTHRITIS
     Dosage: 13DEC10;75MG,07JAN11;500MG, NO OF ADMINISTRATIONS:2
     Route: 041
     Dates: start: 20101129, end: 20110121
  9. METHOTREXATE [Suspect]
     Dosage: FOR 10 YEARS,UNK-25JAN11,25APR11-ONG
     Route: 048
  10. ALENDRONATE SODIUM [Concomitant]

REACTIONS (2)
  - PANCYTOPENIA [None]
  - APLASTIC ANAEMIA [None]
